FAERS Safety Report 4945473-0 (Version None)
Quarter: 2006Q1

REPORT INFORMATION
  Report Type: 
  Country: None (occurrence: None)
  Receive Date: 20060316
  Receipt Date: 20060309
  Transmission Date: 20060701
  Serious: Yes (Death, Life-Threatening)
  Sender: FDA-Public Use
  Company Number: HU-GLAXOSMITHKLINE-B0415338A

PATIENT
  Age: 83 Year
  Sex: Female

DRUGS (5)
  1. FONDAPARINUX [Suspect]
     Indication: ACUTE MYOCARDIAL INFARCTION
     Dosage: 2.5MG PER DAY
     Route: 058
     Dates: start: 20050110
  2. ASPIRIN [Concomitant]
  3. BETALOC [Concomitant]
  4. ENALAPRIL MALEATE [Concomitant]
  5. PETHIDINE [Concomitant]

REACTIONS (2)
  - CORONARY ARTERY THROMBOSIS [None]
  - ELECTROMECHANICAL DISSOCIATION [None]
